FAERS Safety Report 16072135 (Version 1)
Quarter: 2019Q1

REPORT INFORMATION
  Report Type: Spontaneous
  Country: US (occurrence: US)
  Receive Date: 20190314
  Receipt Date: 20190314
  Transmission Date: 20190418
  Serious: No
  Sender: FDA-Public Use
  Company Number: US-SA-2019SA063497

PATIENT
  Sex: Female

DRUGS (1)
  1. TALWIN NX [Suspect]
     Active Substance: NALOXONE HYDROCHLORIDE\PENTAZOCINE HYDROCHLORIDE
     Dosage: UNK UNK, UNK

REACTIONS (1)
  - Urticaria [Unknown]
